FAERS Safety Report 13507620 (Version 1)
Quarter: 2017Q2

REPORT INFORMATION
  Report Type: Spontaneous
  Country: US (occurrence: US)
  Receive Date: 20170502
  Receipt Date: 20170502
  Transmission Date: 20170830
  Serious: No
  Sender: FDA-Public Use
  Company Number: None

PATIENT
  Age: 46 Year
  Sex: Male
  Weight: 88.91 kg

DRUGS (1)
  1. SILDENAFIL 20MG [Suspect]
     Active Substance: SILDENAFIL
     Indication: ERECTILE DYSFUNCTION
     Dosage: DOSE - 1-2 1 HR B4 ACTIVITY
     Route: 048
     Dates: start: 20141111, end: 20141202

REACTIONS (3)
  - Product substitution issue [None]
  - Nausea [None]
  - Drug effect decreased [None]

NARRATIVE: CASE EVENT DATE: 20141111
